FAERS Safety Report 5180387-5 (Version None)
Quarter: 2006Q4

REPORT INFORMATION
  Report Type: 
  Country: None (occurrence: None)
  Receive Date: 20060919
  Receipt Date: 20060713
  Transmission Date: 20070319
  Serious: No
  Sender: FDA-Public Use
  Company Number: 2006US001579

PATIENT
  Sex: Female

DRUGS (1)
  1. VESICARE [Suspect]
     Indication: DRUG USE FOR UNKNOWN INDICATION
     Dosage: 5 MG,

REACTIONS (3)
  - EYE HAEMORRHAGE [None]
  - OCULAR HYPERAEMIA [None]
  - VISION BLURRED [None]
